FAERS Safety Report 9106638 (Version 1)
Quarter: 2013Q1

REPORT INFORMATION
  Report Type: Spontaneous
  Country: GB (occurrence: GB)
  Receive Date: 20130222
  Receipt Date: 20130222
  Transmission Date: 20140127
  Serious: Yes (Life-Threatening, Hospitalization)
  Sender: FDA-Public Use
  Company Number: PHHY2009GB06681

PATIENT
  Age: 37 Year
  Sex: Female

DRUGS (6)
  1. CLOZARIL [Suspect]
     Indication: SCHIZOPHRENIA
     Dosage: 300 MG, DAILY
     Route: 048
     Dates: start: 20080721
  2. VALPROATE SODIUM [Concomitant]
     Indication: SCHIZOAFFECTIVE DISORDER
     Dosage: 2500 MG, UNK
     Route: 048
  3. BENDROFLUMETHIAZIDE [Concomitant]
     Indication: DIABETES INSIPIDUS
     Dosage: 5 MG, DAILY
     Route: 048
  4. AMILORIDE [Concomitant]
     Indication: DIABETES INSIPIDUS
     Dosage: 10 MG, DAILY
     Route: 048
  5. LAMOTRIGINE [Concomitant]
     Indication: AFFECTIVE DISORDER
     Dosage: 10 MG, DAILY
     Route: 048
  6. DEPO PROVERA [Concomitant]
     Indication: DYSMENORRHOEA
     Dosage: UNK
     Route: 030

REACTIONS (8)
  - Sepsis [Recovered/Resolved]
  - Lower respiratory tract infection [Recovered/Resolved]
  - Cellulitis [Recovered/Resolved]
  - Neutrophil count increased [Recovered/Resolved]
  - Epilepsy [Recovered/Resolved]
  - Depressed level of consciousness [Unknown]
  - Deep vein thrombosis [Unknown]
  - White blood cell count increased [Unknown]
